FAERS Safety Report 10950547 (Version 1)
Quarter: 2015Q1

REPORT INFORMATION
  Report Type: Spontaneous
  Country: US (occurrence: None)
  Receive Date: 20150323
  Receipt Date: 20150323
  Transmission Date: 20150721
  Serious: Yes (Disabling)
  Sender: FDA-Public Use
  Company Number: None

PATIENT
  Age: 52 Year
  Sex: Female
  Weight: 56.7 kg

DRUGS (7)
  1. XANAX [Concomitant]
     Active Substance: ALPRAZOLAM
  2. PS100 [Concomitant]
  3. FISH OIL [Concomitant]
     Active Substance: FISH OIL
  4. MAGNESIUM [Concomitant]
     Active Substance: MAGNESIUM
  5. ASTAXANTHIN [Concomitant]
  6. BOTOX [Suspect]
     Active Substance: ONABOTULINUMTOXINA
     Indication: SKIN WRINKLING
     Dosage: 54 UNITS; GIVEN INTO/UNDER THE SKIN
     Dates: start: 20140403
  7. VITAMIN D [Concomitant]
     Active Substance: CHOLECALCIFEROL

REACTIONS (13)
  - Spasmodic dysphonia [None]
  - Dyspnoea [None]
  - Muscle spasms [None]
  - Dystonia [None]
  - Asthenia [None]
  - Depression [None]
  - Tremor [None]
  - Muscle contractions involuntary [None]
  - Myalgia [None]
  - Anxiety [None]
  - Muscle disorder [None]
  - Speech disorder [None]
  - Dysphagia [None]

NARRATIVE: CASE EVENT DATE: 20140403
